FAERS Safety Report 19700343 (Version 1)
Quarter: 2021Q3

REPORT INFORMATION
  Report Type: Spontaneous
  Country: SE (occurrence: SE)
  Receive Date: 20210813
  Receipt Date: 20210813
  Transmission Date: 20211014
  Serious: Yes (Other)
  Sender: FDA-Public Use
  Company Number: SE-MYLANLABS-2021M1049753

PATIENT
  Age: 64 Year
  Sex: Female

DRUGS (9)
  1. METOPROLOL. [Concomitant]
     Active Substance: METOPROLOL
     Dosage: 50 MILLIGRAM, QD
  2. KALEORID [Concomitant]
     Active Substance: POTASSIUM CHLORIDE
     Dosage: 1500 MILLIGRAM, QD
  3. METOPROLOL. [Concomitant]
     Active Substance: METOPROLOL
     Dosage: 100 MILLIGRAM, QD
  4. ONDANSETRON [Concomitant]
     Active Substance: ONDANSETRON
     Dosage: 2 DOSAGE FORM, QD
  5. HALDOL [Concomitant]
     Active Substance: HALOPERIDOL
     Dosage: 2 DOSAGE FORM, QD (DOSAGE: 0.5 X 2)
  6. FINACEA [Concomitant]
     Active Substance: AZELAIC ACID
     Dosage: 2 DOSAGE FORM, QD
  7. LERGIGAN                           /00033002/ [Concomitant]
     Active Substance: PROMETHAZINE HYDROCHLORIDE
     Dosage: 75 MILLIGRAM, QD
  8. HYDROCHLOROTHIAZIDE/LOSARTAN [Suspect]
     Active Substance: HYDROCHLOROTHIAZIDE\LOSARTAN
     Indication: PRODUCT USED FOR UNKNOWN INDICATION
     Dosage: 1 DOSAGE FORM, QD, STRENGTH 100/25
     Dates: end: 2020
  9. LERCANIDIPINE [Concomitant]
     Active Substance: LERCANIDIPINE
     Dosage: 10 MILLIGRAM, QD

REACTIONS (1)
  - Prerenal failure [Unknown]

NARRATIVE: CASE EVENT DATE: 2020
